FAERS Safety Report 4881185-X (Version None)
Quarter: 2006Q1

REPORT INFORMATION
  Report Type: 
  Country: None (occurrence: None)
  Receive Date: 20060111
  Receipt Date: 20060111
  Transmission Date: 20060701
  Serious: Yes (Hospitalization)
  Sender: FDA-Public Use
  Company Number: None

PATIENT
  Age: 30 Year
  Sex: Female
  Weight: 53 kg

DRUGS (4)
  1. ERBITUX [Suspect]
     Indication: OESOPHAGEAL SQUAMOUS CELL CARCINOMA
     Dosage: 250 ONCE A WEEK INTRAVENOUS DRIP
     Route: 041
     Dates: start: 20051220, end: 20060124
  2. PACLITAXEL [Concomitant]
  3. CARBOPLATIN [Concomitant]
  4. RADIATION THERAPY [Concomitant]

REACTIONS (5)
  - CATHETER RELATED INFECTION [None]
  - CULTURE THROAT POSITIVE [None]
  - CULTURE URINE POSITIVE [None]
  - STAPHYLOCOCCAL INFECTION [None]
  - STREPTOCOCCAL INFECTION [None]
